FAERS Safety Report 20936717 (Version 2)
Quarter: 2022Q2

REPORT INFORMATION
  Report Type: Spontaneous
  Country: FR (occurrence: None)
  Receive Date: 20220609
  Receipt Date: 20220628
  Transmission Date: 20220721
  Serious: Yes (Hospitalization)
  Sender: FDA-Public Use
  Company Number: FR-Unichem Pharmaceuticals (USA) Inc-UCM202206-000528

PATIENT
  Age: 47 Year
  Sex: Male

DRUGS (5)
  1. ALLOPURINOL [Suspect]
     Active Substance: ALLOPURINOL
     Indication: Gout
     Dosage: UNKNOWN
  2. COLCHICINE [Concomitant]
     Active Substance: COLCHICINE
     Indication: Gout
     Dosage: UNKNOWN
  3. KETOPROFEN [Concomitant]
     Active Substance: KETOPROFEN
     Indication: Gout
     Dosage: UNKNOWN
  4. OMEPRAZOLE [Concomitant]
     Active Substance: OMEPRAZOLE
     Indication: Gout
     Dosage: UNKNOWN
  5. ACETAMINOPHEN [Concomitant]
     Active Substance: ACETAMINOPHEN
     Indication: Gout
     Dosage: UNKNOWN

REACTIONS (2)
  - Renal vasculitis [Recovered/Resolved]
  - Acute kidney injury [Recovered/Resolved]
